FAERS Safety Report 24348513 (Version 1)
Quarter: 2024Q3

REPORT INFORMATION
  Report Type: Spontaneous
  Country: US (occurrence: US)
  Receive Date: 20240923
  Receipt Date: 20240923
  Transmission Date: 20241016
  Serious: No
  Sender: GLAXOSMITHKLINE
  Company Number: US-GSK-US2024114162

PATIENT
  Sex: Female

DRUGS (1)
  1. BENLYSTA [Suspect]
     Active Substance: BELIMUMAB
     Indication: Product used for unknown indication
     Dosage: UNK

REACTIONS (5)
  - Contusion [Recovered/Resolved]
  - Pain [Recovering/Resolving]
  - Cellulitis [Recovering/Resolving]
  - Abscess [Recovering/Resolving]
  - Nodule [Recovering/Resolving]
